FAERS Safety Report 9243407 (Version 2)
Quarter: 2013Q2

REPORT INFORMATION
  Report Type: Spontaneous
  Country: IT (occurrence: IT)
  Receive Date: 20130421
  Receipt Date: 20130509
  Transmission Date: 20140414
  Serious: Yes (Hospitalization, Other)
  Sender: FDA-Public Use
  Company Number: IT-BRISTOL-MYERS SQUIBB COMPANY-18774083

PATIENT
  Age: 84 Year
  Sex: Female

DRUGS (6)
  1. COUMADIN TABS 5 MG [Suspect]
     Indication: ATRIAL FIBRILLATION
     Dosage: DOSAGE/1/UNIT/AS NEEDED/ORALLY.?20MAR2013. RESTARTED UKN DATE: 1TAB/DAY
     Route: 048
     Dates: start: 20100101
  2. ENALAPRIL MALEATE [Concomitant]
     Route: 048
  3. BISOPROLOL HEMIFUMARATE [Concomitant]
     Route: 048
  4. FUROSEMIDE [Concomitant]
     Dosage: 1DF:DOSAGE/1/UNIT/ORALLY
     Route: 048
  5. SPIRONOLACTONE [Concomitant]
     Dosage: 1DF:DOSAGE/1/UNIT
     Route: 048
  6. AMIODARONE HCL [Concomitant]
     Dosage: 1DF:DOSAGE/1/UNIT/ORALLY
     Route: 048

REACTIONS (4)
  - International normalised ratio increased [Recovering/Resolving]
  - Anaemia [Recovering/Resolving]
  - Erosive oesophagitis [Recovering/Resolving]
  - Cardiac failure [Recovered/Resolved]
